FAERS Safety Report 7831551-5 (Version None)
Quarter: 2011Q4

REPORT INFORMATION
  Report Type: 
  Country: None (occurrence: None)
  Receive Date: 20111021
  Receipt Date: 20111018
  Transmission Date: 20120403
  Serious: Yes (Other)
  Sender: FDA-Public Use
  Company Number: CHPA2011US14357

PATIENT
  Age: 92 Year
  Sex: Female

DRUGS (5)
  1. PREVACID 24 HR [Suspect]
     Indication: GASTROOESOPHAGEAL REFLUX DISEASE
     Dosage: 15 MG A DAY
     Route: 048
     Dates: end: 20111018
  2. ANTIHYPERTENSIVE DRUGS [Concomitant]
     Indication: HYPERTENSION
  3. ASPIRIN [Concomitant]
     Dosage: UNK
     Dates: end: 20111010
  4. THYROID PREPARATIONS [Concomitant]
  5. CHOLESTEROL- AND TRIGLYCERIDE REDUCERS [Concomitant]
     Indication: BLOOD CHOLESTEROL INCREASED

REACTIONS (5)
  - THERAPEUTIC RESPONSE UNEXPECTED [None]
  - OFF LABEL USE [None]
  - INCORRECT DRUG ADMINISTRATION DURATION [None]
  - BREAST CANCER [None]
  - BREAST LUMP REMOVAL [None]
